FAERS Safety Report 4474039-4 (Version None)
Quarter: 2004Q4

REPORT INFORMATION
  Report Type: 
  Country: None (occurrence: None)
  Receive Date: 20041008
  Receipt Date: 20040923
  Transmission Date: 20050328
  Serious: Yes (Hospitalization)
  Sender: FDA-Public Use
  Company Number: 2004-BP-08553BP

PATIENT
  Age: 70 Year
  Sex: Female

DRUGS (7)
  1. SPIRIVA [Suspect]
     Indication: CHRONIC OBSTRUCTIVE AIRWAYS DISEASE
     Dosage: 18 MCG (18 MCG), IH
     Route: 055
     Dates: start: 20040101, end: 20040908
  2. PREDNISONE [Concomitant]
  3. SINGULAIR [Concomitant]
  4. XANAX [Concomitant]
  5. ALBUTEROL + ATROVENT (SALBUTAMOL W/IPRATOPIUM) [Concomitant]
  6. CELEXA [Concomitant]
  7. ADVAIR (SERETIDE MITE) [Concomitant]

REACTIONS (4)
  - DYSARTHRIA [None]
  - HEADACHE [None]
  - MEMORY IMPAIRMENT [None]
  - MENTAL STATUS CHANGES [None]
